FAERS Safety Report 25675267 (Version 1)
Quarter: 2025Q3

REPORT INFORMATION
  Report Type: Spontaneous
  Country: US (occurrence: US)
  Receive Date: 20250813
  Receipt Date: 20250813
  Transmission Date: 20251021
  Serious: Yes (Hospitalization)
  Sender: BAYER HEALTHCARE LLC
  Company Number: US-BAYER-2025A106383

PATIENT
  Age: 70 Year
  Sex: Male

DRUGS (5)
  1. ASPIRIN [Suspect]
     Active Substance: ASPIRIN
     Dosage: 81 MG, QD
  2. CLOPIDOGREL [Suspect]
     Active Substance: CLOPIDOGREL BISULFATE
     Dosage: 75 MG, QD
  3. PROTAMINE [Suspect]
     Active Substance: PROTAMINE
  4. DIPHENHYDRAMINE [Concomitant]
     Active Substance: DIPHENHYDRAMINE
     Route: 042
  5. EPINEPHRINE [Concomitant]
     Active Substance: EPINEPHRINE
     Route: 030

REACTIONS (1)
  - Mediastinal haematoma [None]
